FAERS Safety Report 5384629-2 (Version None)
Quarter: 2007Q3

REPORT INFORMATION
  Report Type: 
  Country: None (occurrence: None)
  Receive Date: 20070711
  Receipt Date: 20070629
  Transmission Date: 20080115
  Serious: Yes (Hospitalization)
  Sender: FDA-Public Use
  Company Number: US-PFIZER INC-2007030668

PATIENT
  Sex: Female
  Weight: 66 kg

DRUGS (2)
  1. ZIPRASIDONE (CAPS) [Suspect]
     Indication: BIPOLAR I DISORDER
     Route: 048
     Dates: start: 20070103
  2. IBUPROFEN [Concomitant]
     Route: 048
     Dates: start: 20070118, end: 20070221

REACTIONS (2)
  - CONSTIPATION [None]
  - DUODENAL ULCER [None]
